FAERS Safety Report 23560997 (Version 5)
Quarter: 2024Q2

REPORT INFORMATION
  Report Type: Report from Study
  Country: US (occurrence: US)
  Receive Date: 20240224
  Receipt Date: 20240606
  Transmission Date: 20240716
  Serious: Yes (Other)
  Sender: FDA-Public Use
  Company Number: US-002147023-NVSC2024US037781

PATIENT
  Sex: Female
  Weight: 91.17 kg

DRUGS (6)
  1. COSENTYX [Suspect]
     Active Substance: SECUKINUMAB
     Indication: Hidradenitis
     Dosage: 300 MG/KG, QMO
     Route: 058
     Dates: start: 202312
  2. COSENTYX [Suspect]
     Active Substance: SECUKINUMAB
     Dosage: 300 MG, QMO (1 X MONTH)
     Route: 065
  3. COSENTYX [Suspect]
     Active Substance: SECUKINUMAB
     Dosage: FIRST 7 LOADING DOSES, QW
     Route: 065
  4. COSENTYX [Suspect]
     Active Substance: SECUKINUMAB
     Dosage: 300 MG, QMO (NEXT 4 MONTHLY DOES)
     Route: 065
  5. BETASEPT [Concomitant]
     Active Substance: CHLORHEXIDINE GLUCONATE
     Indication: Product used for unknown indication
     Dosage: 1 DOSAGE FORM, QD (BATH)
     Route: 050
  6. DOXYCYCLINE [Concomitant]
     Active Substance: DOXYCYCLINE\DOXYCYCLINE HYCLATE
     Indication: Product used for unknown indication
     Dosage: 100 MG, BID
     Route: 065

REACTIONS (8)
  - Choking [Unknown]
  - Cough [Unknown]
  - Device malfunction [Unknown]
  - Device use issue [Unknown]
  - Accidental exposure to product [Unknown]
  - Product prescribing error [Unknown]
  - Product dispensing issue [Unknown]
  - Device failure [Unknown]
